FAERS Safety Report 5456859-2 (Version None)
Quarter: 2007Q3

REPORT INFORMATION
  Report Type: 
  Country: None (occurrence: None)
  Receive Date: 20070918
  Receipt Date: 20070531
  Transmission Date: 20080115
  Serious: Yes (Other)
  Sender: FDA-Public Use
  Company Number: US-ASTRAZENECA-2006UW26673

PATIENT
  Age: 16708 Day
  Sex: Female
  Weight: 70.5 kg

DRUGS (5)
  1. SEROQUEL [Suspect]
     Indication: SCHIZOPHRENIA
     Route: 048
     Dates: start: 20000101, end: 20040101
  2. SEROQUEL [Suspect]
     Indication: DEPRESSION
     Route: 048
     Dates: start: 20000101, end: 20040101
  3. ABILIFY [Concomitant]
  4. GEODON [Concomitant]
  5. RISPERDAL [Concomitant]

REACTIONS (2)
  - DIABETES MELLITUS [None]
  - DIABETIC COMA [None]
